FAERS Safety Report 7942064-4 (Version None)
Quarter: 2011Q4

REPORT INFORMATION
  Report Type: 
  Country: None (occurrence: None)
  Receive Date: 20111128
  Receipt Date: 20111128
  Transmission Date: 20120403
  Serious: No
  Sender: FDA-Public Use
  Company Number: None

PATIENT
  Age: 40 Year
  Sex: Female
  Weight: 61.688 kg

DRUGS (2)
  1. OXYCODONE HCL [Suspect]
     Indication: HERNIA REPAIR
     Dosage: 1 PILL
     Dates: start: 20110201, end: 20111127
  2. OXYCODONE HCL [Suspect]
     Indication: NERVE INJURY
     Dosage: 1 PILL
     Dates: start: 20110201, end: 20111127

REACTIONS (2)
  - OEDEMA PERIPHERAL [None]
  - URINARY RETENTION [None]
